FAERS Safety Report 4862073-1 (Version None)
Quarter: 2005Q4

REPORT INFORMATION
  Report Type: 
  Country: None (occurrence: None)
  Receive Date: 20051201
  Receipt Date: 20050816
  Transmission Date: 20060501
  Serious: No
  Sender: FDA-Public Use
  Company Number: 2005PV001214

PATIENT
  Age: 68 Year
  Sex: Female
  Weight: 82.5547 kg

DRUGS (11)
  1. BYETTA [Suspect]
     Indication: DIABETES MELLITUS NON-INSULIN-DEPENDENT
     Dosage: 5 MCG;BID;SC
     Route: 058
     Dates: start: 20050815
  2. GLUCOPHAGE XR [Concomitant]
  3. GLYNASE [Concomitant]
  4. NORVASC [Concomitant]
  5. ATENOLOL [Concomitant]
  6. LIPITOR [Concomitant]
  7. ZESTRIL [Concomitant]
  8. SPIRONOLACTONE [Concomitant]
  9. NEXIUM [Concomitant]
  10. SYNTHROID [Concomitant]
  11. HUMALOG [Concomitant]

REACTIONS (4)
  - DYSPEPSIA [None]
  - ERUCTATION [None]
  - HEADACHE [None]
  - POLLAKIURIA [None]
